FAERS Safety Report 4867785-1 (Version None)
Quarter: 2005Q4

REPORT INFORMATION
  Report Type: 
  Country: None (occurrence: None)
  Receive Date: 20051227
  Receipt Date: 20051227
  Transmission Date: 20060501
  Serious: Yes (Hospitalization)
  Sender: FDA-Public Use
  Company Number: None

PATIENT
  Sex: Female
  Weight: 67.1324 kg

DRUGS (20)
  1. COENZYME Q10 [Suspect]
     Indication: BREAST CANCER
     Dosage: 100MG TID PO
     Route: 048
     Dates: start: 20051118
  2. COENZYME Q10 [Suspect]
     Indication: CHEMOTHERAPY
     Dosage: 100MG TID PO
     Route: 048
     Dates: start: 20051118
  3. COENZYME Q10 [Suspect]
     Indication: FATIGUE
     Dosage: 100MG TID PO
     Route: 048
     Dates: start: 20051118
  4. PROTONIX [Concomitant]
  5. PROMETHAZINE [Concomitant]
  6. ALPRAZDAN [Concomitant]
  7. GLIPIZIDEUS [Concomitant]
  8. TOPROL-XL [Concomitant]
  9. SYNTHROID [Concomitant]
  10. AVANDIA [Concomitant]
  11. ASPIRIN [Concomitant]
  12. OXYCODONE [Concomitant]
  13. DECADRON PHOSPHATE [Concomitant]
  14. EMOND TRI PAK [Concomitant]
  15. ZOTRAN [Concomitant]
  16. COMPAZINE [Concomitant]
  17. NYSTATIN [Concomitant]
  18. ENSURE [Concomitant]
  19. VICODIN [Concomitant]
  20. ARIMIDEX [Concomitant]

REACTIONS (3)
  - HYPERGLYCAEMIA [None]
  - NEUTROPENIA [None]
  - SYNCOPE [None]
